FAERS Safety Report 20734196 (Version 1)
Quarter: 2022Q2

REPORT INFORMATION
  Report Type: Spontaneous
  Country: US (occurrence: None)
  Receive Date: 20220420
  Receipt Date: 20220420
  Transmission Date: 20220720
  Serious: No
  Sender: FDA-Public Use
  Company Number: None

PATIENT
  Sex: Female

DRUGS (1)
  1. DEXAMETHASONE [Suspect]
     Active Substance: DEXAMETHASONE
     Dosage: FREQUENCY : 4 TIMES A DAY;?

REACTIONS (6)
  - Haemoglobin decreased [None]
  - Chills [None]
  - Pyrexia [None]
  - Nausea [None]
  - Vomiting [None]
  - Renal disorder [None]
